FAERS Safety Report 7157729-4 (Version None)
Quarter: 2010Q4

REPORT INFORMATION
  Report Type: 
  Country: None (occurrence: None)
  Receive Date: 20101214
  Receipt Date: 20100222
  Transmission Date: 20110411
  Serious: No
  Sender: FDA-Public Use
  Company Number: US-ASTRAZENECA-2010SE04321

PATIENT
  Age: 73 Year
  Sex: Male
  Weight: 72.6 kg

DRUGS (3)
  1. CRESTOR [Suspect]
     Indication: HYPERLIPIDAEMIA
     Route: 048
     Dates: start: 20090901, end: 20100123
  2. COD LIVER OIL [Concomitant]
  3. TYLENOL (CAPLET) [Concomitant]

REACTIONS (8)
  - ALANINE AMINOTRANSFERASE INCREASED [None]
  - ASPARTATE AMINOTRANSFERASE INCREASED [None]
  - BLOOD CREATINE PHOSPHOKINASE INCREASED [None]
  - BLOOD CREATINE PHOSPHOKINASE MB INCREASED [None]
  - HIGH DENSITY LIPOPROTEIN INCREASED [None]
  - INFLUENZA LIKE ILLNESS [None]
  - MYALGIA [None]
  - PAIN [None]
